FAERS Safety Report 4801400-8 (Version None)
Quarter: 2005Q4

REPORT INFORMATION
  Report Type: 
  Country: None (occurrence: None)
  Receive Date: 20051011
  Receipt Date: 20041222
  Transmission Date: 20060501
  Serious: Yes (Hospitalization, Other)
  Sender: FDA-Public Use
  Company Number: KII-2004-0018902

PATIENT
  Age: 88 Year
  Sex: Male

DRUGS (7)
  1. THEOPHYLLINE [Suspect]
     Indication: INTENTIONAL DRUG MISUSE
     Dosage: ORAL
     Route: 048
  2. BENZODIAZEPINE DERIVATIVES [Suspect]
     Indication: INTENTIONAL DRUG MISUSE
     Dosage: ORAL
     Route: 048
  3. L-DOPA(LEVODOPA) [Suspect]
     Indication: INTENTIONAL DRUG MISUSE
  4. SSRI [Suspect]
     Indication: INTENTIONAL DRUG MISUSE
     Dosage: ORAL
     Route: 048
  5. CIMETIDINE [Suspect]
     Indication: INTENTIONAL DRUG MISUSE
     Dosage: ORAL
     Route: 048
  6. LOPID [Suspect]
     Indication: INTENTIONAL DRUG MISUSE
     Dosage: ORAL
     Route: 048
  7. ACETAMINOPHEN AND OXYCODONE HCL [Suspect]

REACTIONS (8)
  - BLOOD PRESSURE SYSTOLIC DECREASED [None]
  - HYPERTENSION [None]
  - INTENTIONAL DRUG MISUSE [None]
  - NODAL RHYTHM [None]
  - OVERDOSE [None]
  - SINUS BRADYCARDIA [None]
  - SOMNOLENCE [None]
  - SUICIDE ATTEMPT [None]
